FAERS Safety Report 24723931 (Version 1)
Quarter: 2024Q4

REPORT INFORMATION
  Report Type: Spontaneous
  Country: CN (occurrence: CN)
  Receive Date: 20241211
  Receipt Date: 20241211
  Transmission Date: 20250115
  Serious: Yes (Hospitalization)
  Sender: EISAI
  Company Number: CN-Eisai-EC-2024-180268

PATIENT
  Age: 68 Year
  Sex: Male

DRUGS (2)
  1. LENVATINIB [Suspect]
     Active Substance: LENVATINIB
     Indication: Hepatocellular carcinoma
     Route: 048
     Dates: start: 202103
  2. LENVATINIB [Suspect]
     Active Substance: LENVATINIB
     Indication: Proteinuria
     Route: 048
     Dates: start: 202210, end: 202312

REACTIONS (1)
  - Microangiopathy [Recovering/Resolving]

NARRATIVE: CASE EVENT DATE: 20231101
